FAERS Safety Report 17074583 (Version 1)
Quarter: 2019Q4

REPORT INFORMATION
  Report Type: Spontaneous
  Country: US (occurrence: US)
  Receive Date: 20191126
  Receipt Date: 20191126
  Transmission Date: 20200122
  Serious: No
  Sender: FDA-Public Use
  Company Number: US-MYLANLABS-2019M1109148

PATIENT
  Sex: Female
  Weight: 74 kg

DRUGS (2)
  1. ALPRAZOLAM. [Suspect]
     Active Substance: ALPRAZOLAM
     Indication: ANXIETY
     Dosage: 0.5 MILLIGRAM, PRN, TID
     Route: 048
  2. FLU [Concomitant]
     Active Substance: INFLUENZA VIRUS VACCINE
     Indication: INFLUENZA IMMUNISATION

REACTIONS (6)
  - Swollen tongue [Recovered/Resolved]
  - Lip swelling [Unknown]
  - Gingival swelling [Unknown]
  - Dry mouth [Unknown]
  - Pyrexia [Unknown]
  - Oropharyngeal discomfort [Unknown]
